FAERS Safety Report 8350655-4 (Version None)
Quarter: 2012Q2

REPORT INFORMATION
  Report Type: 
  Country: None (occurrence: None)
  Receive Date: 20120510
  Receipt Date: 20120508
  Transmission Date: 20120825
  Serious: Yes (Death, Other)
  Sender: FDA-Public Use
  Company Number: JP-JNJFOC-20101101854

PATIENT
  Sex: Female
  Weight: 57 kg

DRUGS (31)
  1. AMINO ACID INJ [Concomitant]
     Route: 042
     Dates: start: 20100318, end: 20100418
  2. PRIMPERAN TAB [Concomitant]
     Route: 042
     Dates: start: 20100312, end: 20100315
  3. LASIX [Concomitant]
     Route: 042
     Dates: start: 20100401
  4. DOXORUBICIN HCL [Suspect]
     Indication: OVARIAN CANCER RECURRENT
     Route: 042
     Dates: start: 20100319, end: 20100319
  5. FAMOTIDINE [Concomitant]
     Route: 042
     Dates: start: 20100317, end: 20100301
  6. XYLOCAINE [Concomitant]
     Dates: start: 20100330
  7. VITAMIN B12 [Concomitant]
     Route: 048
     Dates: end: 20100225
  8. AMINO ACID INJ [Concomitant]
     Route: 042
     Dates: start: 20100312, end: 20100315
  9. CEFTRIAXONE SODIUM [Concomitant]
     Indication: PROPHYLAXIS
     Route: 042
     Dates: start: 20100403, end: 20100420
  10. LOXONIN [Concomitant]
     Route: 048
     Dates: start: 20100327, end: 20100329
  11. WATER FOR INJECTION [Concomitant]
     Route: 042
     Dates: start: 20100330
  12. FERROUS CITRATE [Concomitant]
     Route: 048
     Dates: end: 20100225
  13. FAMOTIDINE [Concomitant]
     Route: 048
     Dates: start: 20100305, end: 20100312
  14. ASCORBIC ACID [Concomitant]
     Route: 042
     Dates: start: 20100317, end: 20100318
  15. LASIX [Concomitant]
     Route: 042
     Dates: start: 20100312, end: 20100315
  16. FAMOTIDINE [Concomitant]
     Route: 042
     Dates: start: 20100320
  17. VITAMEDIN [Concomitant]
     Route: 042
     Dates: start: 20100317, end: 20100318
  18. GLYCYRON [Concomitant]
     Route: 048
     Dates: start: 20100305, end: 20100312
  19. AMINO ACID INJ [Concomitant]
     Route: 042
     Dates: start: 20100317, end: 20100318
  20. LASIX [Concomitant]
     Route: 042
     Dates: start: 20100320, end: 20100331
  21. POTASSIUM CHLORIDE [Concomitant]
     Route: 042
     Dates: start: 20100419
  22. DOXORUBICIN HCL [Suspect]
     Route: 042
     Dates: start: 20100219, end: 20100219
  23. IODINE [Concomitant]
     Indication: PROPHYLAXIS
     Route: 049
     Dates: start: 20100220, end: 20100330
  24. AZUNOL [Concomitant]
     Route: 049
     Dates: start: 20100330
  25. FLUMARIN [Concomitant]
     Indication: PROPHYLAXIS
     Route: 042
     Dates: start: 20100330, end: 20100402
  26. MUCOSTA [Concomitant]
     Indication: PROPHYLAXIS
     Route: 048
     Dates: start: 20100226, end: 20100312
  27. PRIMPERAN TAB [Concomitant]
     Route: 042
     Dates: start: 20100321
  28. LASIX [Concomitant]
     Route: 042
     Dates: start: 20100317, end: 20100319
  29. FAMOTIDINE [Concomitant]
     Route: 042
     Dates: start: 20100319, end: 20100319
  30. FLURBIPROFEN [Concomitant]
     Route: 042
     Dates: start: 20100330
  31. AMIKAMYCIN [Concomitant]
     Indication: PROPHYLAXIS
     Route: 042
     Dates: start: 20100403, end: 20100413

REACTIONS (3)
  - ASCITES [None]
  - OVARIAN CANCER RECURRENT [None]
  - ILEUS [None]
